FAERS Safety Report 19426857 (Version 2)
Quarter: 2022Q4

REPORT INFORMATION
  Report Type: Spontaneous
  Country: US (occurrence: US)
  Receive Date: 20210617
  Receipt Date: 20221209
  Transmission Date: 20230113
  Serious: No
  Sender: FDA-Public Use
  Company Number: US-JNJFOC-20210632215

PATIENT
  Sex: Male

DRUGS (1)
  1. IMODIUM A-D [Suspect]
     Active Substance: LOPERAMIDE HYDROCHLORIDE
     Indication: Diarrhoea
     Dosage: PRODUCT START DATE: LAST WEEK BUT DONT HAVE SPECIFIC; ONLY USE IT ONCE. ONLY USE IT 1 TIME
     Route: 048

REACTIONS (1)
  - Faeces discoloured [Recovered/Resolved]
